FAERS Safety Report 16725245 (Version 1)
Quarter: 2019Q3

REPORT INFORMATION
  Report Type: Spontaneous
  Country: FR (occurrence: FR)
  Receive Date: 20190821
  Receipt Date: 20190821
  Transmission Date: 20191005
  Serious: Yes (Death, Other)
  Sender: FDA-Public Use
  Company Number: FR-PFIZER INC-2019358279

PATIENT
  Age: 57 Year
  Sex: Male

DRUGS (15)
  1. DOCETAXEL. [Suspect]
     Active Substance: DOCETAXEL
     Indication: BREAST CANCER MALE
     Dosage: 72 MG/M2, UNK
     Route: 042
     Dates: start: 20160612, end: 20170305
  2. MASITINIB [Suspect]
     Active Substance: MASITINIB
     Dosage: 600 MG, DAILY (5.71 MG/KG/DAY)
     Dates: start: 20161206, end: 20161208
  3. MORPHINUM HCL [Concomitant]
     Indication: BONE PAIN
     Dosage: 10 MG, DAILY
     Route: 042
     Dates: start: 20161211
  4. MASITINIB [Suspect]
     Active Substance: MASITINIB
     Dosage: 600 MG, DAILY (5.71 MG/KG/DAY)
     Dates: start: 20170131, end: 20170512
  5. PREDNISONE. [Suspect]
     Active Substance: PREDNISONE
     Dosage: 10 MG, DAILY
     Dates: start: 20161206, end: 20170515
  6. KETOROLAC [Concomitant]
     Active Substance: KETOROLAC TROMETHAMINE
     Indication: PAIN
     Dosage: 1 DF, 2X/DAY
     Route: 048
     Dates: start: 20161211
  7. ONDANSETRON [Concomitant]
     Active Substance: ONDANSETRON
     Dosage: 24 MG, SINGLE
     Route: 042
     Dates: start: 20170116, end: 20170116
  8. MASITINIB [Suspect]
     Active Substance: MASITINIB
     Dosage: 600 MG, DAILY (5.71 MG/KG/DAY)
     Dates: end: 20170124
  9. DEXAMETHASONE. [Concomitant]
     Active Substance: DEXAMETHASONE
     Dosage: 20 MG, SINGLE
     Route: 042
     Dates: start: 20161227, end: 20161227
  10. KETOROLAC [Concomitant]
     Active Substance: KETOROLAC TROMETHAMINE
     Indication: BONE PAIN
  11. DEXAMETHASONE. [Concomitant]
     Active Substance: DEXAMETHASONE
     Dosage: 20 MG, SINGLE
     Route: 042
     Dates: start: 20160612, end: 20160612
  12. ONDANSETRON [Concomitant]
     Active Substance: ONDANSETRON
     Dosage: 24 MG, SINGLE
     Route: 042
     Dates: start: 20161227, end: 20161227
  13. MORPHINUM HCL [Concomitant]
     Indication: PAIN
     Dosage: 20 MG, DAILY
     Route: 042
     Dates: end: 20161211
  14. DEXAMETHASONE. [Concomitant]
     Active Substance: DEXAMETHASONE
     Indication: PROPHYLAXIS
     Dosage: 24 MG, SINGLE
     Route: 042
     Dates: start: 20170116, end: 20170116
  15. ONDANSETRON [Concomitant]
     Active Substance: ONDANSETRON
     Indication: PROPHYLAXIS
     Dosage: 24 MG, SINGLE
     Route: 042
     Dates: start: 20161206, end: 20161206

REACTIONS (2)
  - Second primary malignancy [Fatal]
  - Acute lymphocytic leukaemia [Fatal]

NARRATIVE: CASE EVENT DATE: 20170516
